FAERS Safety Report 6361392-X (Version None)
Quarter: 2009Q3

REPORT INFORMATION
  Report Type: 
  Country: None (occurrence: None)
  Receive Date: 20090918
  Receipt Date: 20090908
  Transmission Date: 20100115
  Serious: Yes (Other)
  Sender: FDA-Public Use
  Company Number: TR-ELI_LILLY_AND_COMPANY-TR200909001816

PATIENT
  Sex: Female
  Weight: 31 kg

DRUGS (1)
  1. STRATTERA [Suspect]
     Indication: ATTENTION DEFICIT/HYPERACTIVITY DISORDER
     Dosage: 40 MG, UNKNOWN
     Route: 048
     Dates: start: 20090709, end: 20090908

REACTIONS (6)
  - ABDOMINAL PAIN [None]
  - ARTHRALGIA [None]
  - NAUSEA [None]
  - PAIN IN EXTREMITY [None]
  - SEDATION [None]
  - THERAPEUTIC RESPONSE DECREASED [None]
